FAERS Safety Report 21003731 (Version 1)
Quarter: 2022Q2

REPORT INFORMATION
  Report Type: Spontaneous
  Country: US (occurrence: None)
  Receive Date: 20220624
  Receipt Date: 20220624
  Transmission Date: 20220721
  Serious: Yes (Death)
  Sender: FDA-Public Use
  Company Number: None

PATIENT
  Sex: Male
  Weight: 62.6 kg

DRUGS (6)
  1. PEGASPARGASE [Suspect]
     Active Substance: PEGASPARGASE
     Dates: end: 20220124
  2. CYTARABINE [Suspect]
     Active Substance: CYTARABINE
     Dates: end: 20220201
  3. DAUNORUBICIN [Suspect]
     Active Substance: DAUNORUBICIN
     Dates: end: 20220211
  4. METHOTREXATE [Suspect]
     Active Substance: METHOTREXATE
     Dates: end: 20220218
  5. PREDNISOLONE [Suspect]
     Active Substance: PREDNISOLONE
     Dates: end: 20220201
  6. VINCRISTINE SULFATE [Suspect]
     Active Substance: VINCRISTINE SULFATE
     Dates: end: 20220211

REACTIONS (5)
  - Multiple organ dysfunction syndrome [None]
  - Haemorrhagic necrotic pancreatitis [None]
  - Infection [None]
  - Physical deconditioning [None]
  - Autopsy [None]

NARRATIVE: CASE EVENT DATE: 20220615
